FAERS Safety Report 14030900 (Version 1)
Quarter: 2017Q4

REPORT INFORMATION
  Report Type: Spontaneous
  Country: GB (occurrence: GB)
  Receive Date: 20171002
  Receipt Date: 20171002
  Transmission Date: 20180321
  Serious: Yes (Hospitalization)
  Sender: FDA-Public Use
  Company Number: GB-ACCORD-059438

PATIENT
  Age: 15 Year
  Sex: Female
  Weight: 44 kg

DRUGS (16)
  1. METOCLOPRAMIDE. [Concomitant]
     Active Substance: METOCLOPRAMIDE
  2. NANDROLONE [Concomitant]
     Active Substance: NANDROLONE
  3. PETHIDINE [Concomitant]
     Active Substance: MEPERIDINE
  4. METHOTREXATE. [Suspect]
     Active Substance: METHOTREXATE
     Indication: OSTEOSARCOMA
     Dosage: 3 CYCLES RECEIVED.
     Route: 051
     Dates: start: 20160905, end: 20161221
  5. MAGNESIUM HYDROXIDE. [Concomitant]
     Active Substance: MAGNESIUM HYDROXIDE
  6. IBUPROFEN. [Concomitant]
     Active Substance: IBUPROFEN
  7. TRAMADOL. [Concomitant]
     Active Substance: TRAMADOL
  8. POTASSIUM [Concomitant]
     Active Substance: POTASSIUM
  9. DOXORUBICIN [Concomitant]
     Active Substance: DOXORUBICIN
     Indication: OSTEOSARCOMA
     Dates: start: 20160905
  10. MORPHINE [Concomitant]
     Active Substance: MORPHINE
  11. CISPLATIN. [Concomitant]
     Active Substance: CISPLATIN
     Indication: OSTEOSARCOMA
     Dates: start: 20160905
  12. NOZINAN [Concomitant]
     Active Substance: LEVOMEPROMAZINE
  13. ONDANSETRON [Concomitant]
     Active Substance: ONDANSETRON
  14. PARACETAMOL [Concomitant]
     Active Substance: ACETAMINOPHEN
  15. MIFAMURTIDE [Concomitant]
     Active Substance: MIFAMURTIDE
  16. NABILONE [Concomitant]
     Active Substance: NABILONE

REACTIONS (6)
  - Dyskinesia [Unknown]
  - Encephalopathy [Recovered/Resolved]
  - Hemiparesis [Unknown]
  - Clumsiness [Unknown]
  - Speech disorder [Not Recovered/Not Resolved]
  - Off label use [Unknown]
